FAERS Safety Report 25418610 (Version 1)
Quarter: 2025Q2

REPORT INFORMATION
  Report Type: Spontaneous
  Country: DE (occurrence: DE)
  Receive Date: 20250610
  Receipt Date: 20250610
  Transmission Date: 20250716
  Serious: Yes (Life-Threatening)
  Sender: GLAXOSMITHKLINE
  Company Number: DE-GSK-DE2025EME071177

PATIENT
  Sex: Female

DRUGS (1)
  1. ZEJULA [Suspect]
     Active Substance: NIRAPARIB
     Indication: Ovarian cancer stage III

REACTIONS (1)
  - Blood creatinine increased [Recovered/Resolved]
